FAERS Safety Report 9262604 (Version 1)
Quarter: 2013Q2

REPORT INFORMATION
  Report Type: Spontaneous
  Country: US (occurrence: US)
  Receive Date: 20130430
  Receipt Date: 20130430
  Transmission Date: 20140414
  Serious: Yes (Congenital Anomaly, Other)
  Sender: FDA-Public Use
  Company Number: US-ELI_LILLY_AND_COMPANY-US201304007321

PATIENT
  Age: 0 Year
  Sex: 0

DRUGS (1)
  1. PROZAC [Suspect]
     Indication: DEPRESSION
     Dosage: 1 DF, UNKNOWN
     Route: 064
     Dates: end: 20010925

REACTIONS (6)
  - Ventricular septal defect [Unknown]
  - Congenital cardiovascular anomaly [Unknown]
  - Cardiac murmur [Unknown]
  - Aortic valve incompetence [Unknown]
  - Premature baby [Unknown]
  - Foetal exposure during pregnancy [Unknown]
